FAERS Safety Report 19405420 (Version 1)
Quarter: 2021Q2

REPORT INFORMATION
  Report Type: Spontaneous
  Country: ES (occurrence: ES)
  Receive Date: 20210611
  Receipt Date: 20210611
  Transmission Date: 20210717
  Serious: Yes (Hospitalization)
  Sender: FDA-Public Use
  Company Number: ES-ACCORD-227736

PATIENT
  Age: 86 Year
  Sex: Female

DRUGS (11)
  1. ADIRO [Concomitant]
     Active Substance: ASPIRIN
     Dosage: 100 MG GASTRO?RESISTANT TABLETS EFG
  2. TRANGOREX [Concomitant]
     Active Substance: AMIODARONE HYDROCHLORIDE
  3. DEPRAX [Concomitant]
     Dosage: 100 MG FILM?COATED TABLETS EFG
  4. ORFIDAL [Concomitant]
     Active Substance: LORAZEPAM
     Dosage: 1 MG TABLETS
  5. BILIN [Concomitant]
     Dosage: 0.5 MG / ML EYE DROPS, SUSPENSION
  6. ATACAND PLUS [Concomitant]
     Active Substance: CANDESARTAN CILEXETIL\HYDROCHLOROTHIAZIDE
     Dosage: 32 MG / 12.5 MG TABLETS
  7. SERETIDE [Concomitant]
     Active Substance: FLUTICASONE PROPIONATE\SALMETEROL XINAFOATE
     Dosage: ACCUHALER 50 MICROGRAMS / 100 MICROGRAMS / INHALATION, INHALATION?POWDER
  8. FUROSEMIDE. [Suspect]
     Active Substance: FUROSEMIDE
     Indication: CARDIAC FAILURE
     Dosage: 40 MG TABLET
     Route: 048
     Dates: start: 2020, end: 20200602
  9. VENTOLIN [Concomitant]
     Active Substance: ALBUTEROL SULFATE
     Dosage: 100 MICROGRAMS / INHALATION PRESSURIZED INHALATION SUSPENSION
  10. PANTOPRAZOLE [Concomitant]
     Active Substance: PANTOPRAZOLE
     Dosage: RATIO 40 MG GASTRO?RESISTANT TABLETS EFG
  11. LANTUS SOLOSTAR [Concomitant]
     Active Substance: INSULIN GLARGINE
     Dosage: 100 UNITS / ML SOLUTION FOR INJECTION IN PRE?FILLED PEN

REACTIONS (2)
  - Product administration error [Recovered/Resolved]
  - Acute kidney injury [Recovered/Resolved]

NARRATIVE: CASE EVENT DATE: 20200602
